FAERS Safety Report 6337686-0 (Version None)
Quarter: 2009Q3

REPORT INFORMATION
  Report Type: 
  Country: None (occurrence: None)
  Receive Date: 20090902
  Receipt Date: 20090403
  Transmission Date: 20100115
  Serious: No
  Sender: FDA-Public Use
  Company Number: US-BAYER-200823782NA

PATIENT
  Age: 58 Year
  Sex: Female
  Weight: 111 kg

DRUGS (2)
  1. MAGNEVIST [Suspect]
     Indication: MENINGIOMA
     Dosage: TOTAL DAILY DOSE: 20 ML
     Route: 042
     Dates: start: 20080312, end: 20080312
  2. VALIUM [Concomitant]
     Indication: DRUG USE FOR UNKNOWN INDICATION
     Dates: start: 20080312

REACTIONS (2)
  - NAUSEA [None]
  - PRURITUS [None]
